FAERS Safety Report 9442962 (Version 1)
Quarter: 2013Q3

REPORT INFORMATION
  Report Type: Spontaneous
  Country: US (occurrence: None)
  Receive Date: 20130805
  Receipt Date: 20130805
  Transmission Date: 20140515
  Serious: Yes (Other)
  Sender: FDA-Public Use
  Company Number: None

PATIENT
  Age: 17 None
  Sex: Female
  Weight: 58.97 kg

DRUGS (1)
  1. MICONAZOLE [Suspect]
     Indication: VULVOVAGINAL MYCOTIC INFECTION
     Dosage: MICONAZOLE NITRATE VAGINAL CREAM 200MG 4% 1 APPLICATOR, PREFILLED 1X/NIGHT, 3 NIGHTS, DID 1ST NIGHT INSERTION
     Route: 067
     Dates: start: 20130724, end: 20130725

REACTIONS (2)
  - Pain [None]
  - Middle insomnia [None]
